FAERS Safety Report 9392996 (Version 1)
Quarter: 2013Q3

REPORT INFORMATION
  Report Type: Spontaneous
  Country: US (occurrence: None)
  Receive Date: 20130708
  Receipt Date: 20130708
  Transmission Date: 20140515
  Serious: Yes (Other)
  Sender: FDA-Public Use
  Company Number: None

PATIENT
  Age: 60 Year
  Sex: Male

DRUGS (1)
  1. STIVARGA 40 MG BAYER [Suspect]
     Dosage: X21 DAYS
     Route: 048
     Dates: start: 20121130, end: 20130702

REACTIONS (1)
  - Neoplasm progression [None]
